FAERS Safety Report 13151455 (Version 1)
Quarter: 2017Q1

REPORT INFORMATION
  Report Type: Spontaneous
  Country: US (occurrence: US)
  Receive Date: 20170125
  Receipt Date: 20170125
  Transmission Date: 20170428
  Serious: No
  Sender: FDA-Public Use
  Company Number: US-KADMON PHARMACEUTICALS, LLC-KAD201607-002843

PATIENT
  Age: 44 Year
  Sex: Male

DRUGS (2)
  1. VIEKIRA PAK [Suspect]
     Active Substance: DASABUVIR\OMBITASVIR\PARITAPREVIR\RITONAVIR
     Indication: HEPATITIS C
     Dosage: TABLET
     Route: 048
     Dates: start: 201606
  2. RIBAVIRIN 600 MG TABLETS [Suspect]
     Active Substance: RIBAVIRIN
     Indication: HEPATITIS C
     Route: 048
     Dates: start: 201606

REACTIONS (5)
  - Therapeutic response unexpected [Unknown]
  - Arthralgia [Unknown]
  - Fatigue [Unknown]
  - Myalgia [Unknown]
  - Anger [Unknown]

NARRATIVE: CASE EVENT DATE: 201606
